FAERS Safety Report 25374107 (Version 1)
Quarter: 2025Q2

REPORT INFORMATION
  Report Type: Spontaneous
  Country: US (occurrence: US)
  Receive Date: 20250529
  Receipt Date: 20250529
  Transmission Date: 20250716
  Serious: No
  Sender: GLAXOSMITHKLINE
  Company Number: US-GSK-US2025AMR065322

PATIENT

DRUGS (3)
  1. NUCALA [Suspect]
     Active Substance: MEPOLIZUMAB
     Indication: Gastritis
  2. NUCALA [Suspect]
     Active Substance: MEPOLIZUMAB
     Indication: Abdominal pain upper
  3. NUCALA [Suspect]
     Active Substance: MEPOLIZUMAB
     Indication: Abnormal loss of weight

REACTIONS (1)
  - Off label use [Unknown]
